FAERS Safety Report 19943607 (Version 1)
Quarter: 2021Q4

REPORT INFORMATION
  Report Type: Spontaneous
  Country: DE (occurrence: DE)
  Receive Date: 20211012
  Receipt Date: 20211012
  Transmission Date: 20220303
  Serious: Yes (Hospitalization, Other)
  Sender: FDA-Public Use
  Company Number: DE-ADRED-05814-01

PATIENT
  Age: 61 Year
  Sex: Male
  Weight: 67 kg

DRUGS (3)
  1. ATORVASTATIN [Suspect]
     Active Substance: ATORVASTATIN
     Indication: Product used for unknown indication
     Dosage: 80 MILLIGRAM, QD (80 MG, 0-0-1-0, TABLETTEN)
     Route: 048
  2. ASPIRIN [Suspect]
     Active Substance: ASPIRIN
     Indication: Product used for unknown indication
     Dosage: 100 MILLIGRAM, QD(100 MG, 1-0-0-0, TABLETTEN)
     Route: 048
  3. IRBEPRESS [Concomitant]
     Dosage: 150 MILLIGRAM, QD(150 MG, 1-0-0-0, TABLETTEN)
     Route: 048

REACTIONS (3)
  - Carotid artery stenosis [Unknown]
  - Visual impairment [Unknown]
  - Vision blurred [Unknown]
